FAERS Safety Report 13283857 (Version 1)
Quarter: 2017Q1

REPORT INFORMATION
  Report Type: Report from Study
  Country: US (occurrence: BR)
  Receive Date: 20170301
  Receipt Date: 20170301
  Transmission Date: 20170428
  Serious: Yes (Other)
  Sender: FDA-Public Use
  Company Number: US-SUNOVION-2017SUN000861

PATIENT
  Age: 63 Year
  Sex: Male
  Weight: 70 kg

DRUGS (9)
  1. LOSARTAN. [Suspect]
     Active Substance: LOSARTAN
     Indication: PRODUCT USED FOR UNKNOWN INDICATION
     Dosage: 50 ML,BID
     Route: 065
  2. DIAZEPAN [Suspect]
     Active Substance: DIAZEPAM
     Indication: PSYCHOMOTOR HYPERACTIVITY
     Dosage: 5 DF, UNK
     Route: 048
  3. INDACATEROL AND GLYCOPYRROLATE [Suspect]
     Active Substance: GLYCOPYRROLATE\INDACATEROL MALEATE
     Indication: CHRONIC OBSTRUCTIVE PULMONARY DISEASE
     Dosage: 1 DF, QD
     Route: 055
     Dates: start: 20170206
  4. SIMVASTATIN. [Suspect]
     Active Substance: SIMVASTATIN
     Indication: PRODUCT USED FOR UNKNOWN INDICATION
     Dosage: 1 DF,QD
     Route: 065
  5. LASIX [Concomitant]
     Active Substance: FUROSEMIDE
  6. ALDACTONE [Concomitant]
     Active Substance: SPIRONOLACTONE
  7. CARVEDILOL. [Suspect]
     Active Substance: CARVEDILOL
     Indication: PRODUCT USED FOR UNKNOWN INDICATION
     Dosage: 1 DF, UNK
     Route: 065
  8. DIAZEPAN [Suspect]
     Active Substance: DIAZEPAM
     Dosage: 0.5 DF, UNK
     Route: 048
  9. ASA [Concomitant]
     Active Substance: ASPIRIN

REACTIONS (22)
  - Peripheral coldness [Unknown]
  - Limb discomfort [Unknown]
  - Insomnia [Unknown]
  - Visual impairment [Unknown]
  - Dyspnoea [Unknown]
  - Arrhythmia [Unknown]
  - Pharyngeal oedema [Unknown]
  - Hypoaesthesia [Unknown]
  - Heart rate increased [Unknown]
  - Dizziness [Unknown]
  - Oropharyngeal pain [Unknown]
  - Drug intolerance [Unknown]
  - Tooth injury [Unknown]
  - Throat irritation [Unknown]
  - Diarrhoea [Unknown]
  - Malaise [Unknown]
  - Gingival pain [Unknown]
  - Infarction [Unknown]
  - Paraesthesia [Unknown]
  - Loose tooth [Unknown]
  - Oral pain [Unknown]
  - Dry mouth [Unknown]

NARRATIVE: CASE EVENT DATE: 20170206
